FAERS Safety Report 16778058 (Version 3)
Quarter: 2019Q3

REPORT INFORMATION
  Report Type: Spontaneous
  Country: US (occurrence: US)
  Receive Date: 20190905
  Receipt Date: 20190924
  Transmission Date: 20191005
  Serious: Yes (Hospitalization)
  Sender: FDA-Public Use
  Company Number: US-ACTELION-A-US2019-195240

PATIENT
  Sex: Female

DRUGS (6)
  1. AMLODIPINE [Concomitant]
     Active Substance: AMLODIPINE BESYLATE
  2. TRACLEER [Suspect]
     Active Substance: BOSENTAN
     Indication: PULMONARY ARTERIAL HYPERTENSION
     Dosage: 16 MG, BID
     Route: 048
     Dates: start: 20190418
  3. VIAGRA [Concomitant]
     Active Substance: SILDENAFIL CITRATE
     Dosage: 5.8 MG
  4. MUCOMYST [Concomitant]
     Active Substance: ACETYLCYSTEINE
     Dosage: 2 ML, BID
     Route: 055
     Dates: start: 201408
  5. ALBUTEROL. [Concomitant]
     Active Substance: ALBUTEROL
     Dosage: 0.5 ML, BID
     Route: 055
     Dates: start: 201408
  6. FLOVENT [Concomitant]
     Active Substance: FLUTICASONE PROPIONATE
     Dosage: 110-2 PUFFS BID
     Route: 055
     Dates: start: 201508

REACTIONS (3)
  - Unevaluable event [Unknown]
  - Respiratory distress [Unknown]
  - Enterovirus infection [Unknown]
